FAERS Safety Report 8423370-6 (Version None)
Quarter: 2012Q2

REPORT INFORMATION
  Report Type: 
  Country: None (occurrence: None)
  Receive Date: 20120608
  Receipt Date: 20120529
  Transmission Date: 20120825
  Serious: Yes (Hospitalization)
  Sender: FDA-Public Use
  Company Number: US-CELGENEUS-163-20785-12053134

PATIENT
  Sex: Female
  Weight: 74.456 kg

DRUGS (18)
  1. CLONAZEPAM [Concomitant]
     Route: 065
  2. FENTANYL [Concomitant]
     Route: 065
  3. LASIX [Concomitant]
     Route: 065
  4. ASPIRIN [Concomitant]
     Route: 065
  5. CALCIUM [Concomitant]
     Route: 065
  6. PERCOCET [Concomitant]
     Route: 065
  7. NORVASC [Concomitant]
     Route: 065
  8. THALOMID [Suspect]
     Indication: MULTIPLE MYELOMA
     Dosage: 200 MILLIGRAM
     Route: 048
     Dates: start: 20120324
  9. LORAZEPAM [Concomitant]
     Route: 065
  10. VALTREX [Concomitant]
     Route: 065
  11. ENALAPRIL MALEATE [Concomitant]
     Route: 065
  12. VITAMIN D [Concomitant]
     Route: 065
  13. THALOMID [Suspect]
     Dosage: 200 MILLIGRAM
     Route: 048
     Dates: start: 20120501
  14. ALLOPURINOL [Concomitant]
     Route: 065
  15. FLUOXETINE [Concomitant]
     Route: 065
  16. LYRICA [Concomitant]
     Route: 065
  17. PRILOSEC [Concomitant]
     Route: 065
  18. ZOFRAN [Concomitant]
     Route: 065

REACTIONS (1)
  - PYREXIA [None]
